FAERS Safety Report 7315885-9 (Version None)
Quarter: 2011Q1

REPORT INFORMATION
  Report Type: 
  Country: None (occurrence: None)
  Receive Date: 20110217
  Receipt Date: 20110217
  Transmission Date: 20110831
  Serious: Yes (Other)
  Sender: FDA-Public Use
  Company Number: None

PATIENT

DRUGS (1)
  1. SOLU-MEDROL [Suspect]
     Indication: ANAESTHESIA
     Dosage: 125 MG/2ML IV PUSH IV
     Route: 042
     Dates: start: 20101114

REACTIONS (3)
  - ERYTHEMA [None]
  - FLUSHING [None]
  - BURNING SENSATION [None]
